FAERS Safety Report 14603042 (Version 1)
Quarter: 2018Q1

REPORT INFORMATION
  Report Type: Spontaneous
  Country: US (occurrence: US)
  Receive Date: 20180306
  Receipt Date: 20180306
  Transmission Date: 20180509
  Serious: No
  Sender: FDA-Public Use
  Company Number: US-MYLANLABS-2018M1011299

PATIENT
  Age: 11 Year
  Sex: Male

DRUGS (2)
  1. CYSTAGON [Suspect]
     Active Substance: CYSTEAMINE BITARTRATE
     Indication: RENAL TRANSPLANT
     Dosage: 3 DF, Q6H
     Route: 048
     Dates: start: 20100807
  2. CYSTAGON [Suspect]
     Active Substance: CYSTEAMINE BITARTRATE
     Indication: RENAL TRANSPLANT
     Dosage: 1 DF, Q6H
     Route: 048
     Dates: start: 20080312

REACTIONS (8)
  - Lethargy [Unknown]
  - Diplopia [Unknown]
  - Somnolence [Unknown]
  - Dizziness [Unknown]
  - Diarrhoea [Unknown]
  - Abdominal pain [Unknown]
  - Vision blurred [Unknown]
  - Visual impairment [Unknown]
